FAERS Safety Report 10154963 (Version 1)
Quarter: 2014Q2

REPORT INFORMATION
  Report Type: Spontaneous
  Country: US (occurrence: US)
  Receive Date: 20140506
  Receipt Date: 20140506
  Transmission Date: 20141212
  Serious: Yes (Hospitalization)
  Sender: FDA-Public Use
  Company Number: US-SA-2014SA057669

PATIENT
  Sex: 0

DRUGS (1)
  1. AMBIEN [Suspect]
     Indication: INSOMNIA
     Route: 065

REACTIONS (5)
  - Injury [Unknown]
  - Depressed level of consciousness [Unknown]
  - Dizziness [Unknown]
  - Disorientation [Unknown]
  - Fall [Unknown]
